FAERS Safety Report 13638624 (Version 1)
Quarter: 2017Q2

REPORT INFORMATION
  Report Type: Spontaneous
  Country: FR (occurrence: FR)
  Receive Date: 20170609
  Receipt Date: 20170609
  Transmission Date: 20170830
  Serious: Yes (Hospitalization)
  Sender: FDA-Public Use
  Company Number: ALCN2017FR003667

PATIENT
  Age: 6 Year
  Sex: Male
  Weight: 20 kg

DRUGS (2)
  1. CYCLOPENTOLATE HYDROCHLORIDE. [Suspect]
     Active Substance: CYCLOPENTOLATE HYDROCHLORIDE
     Indication: FUNDOSCOPY
     Dosage: MORE THAN 2 DROPS, ONCE/SINGLE
     Route: 031
     Dates: start: 20170510
  2. SPASFON LYOC [Concomitant]
     Active Substance: PHLOROGLUCINOL
     Indication: ABDOMINAL PAIN
     Dosage: 80 MG, UNK
     Route: 048
     Dates: start: 20170510

REACTIONS (5)
  - Somnolence [Recovered/Resolved]
  - Mydriasis [Recovering/Resolving]
  - Incorrect dose administered [Recovered/Resolved]
  - Drug administration error [Recovered/Resolved]
  - Medication error [Recovered/Resolved]

NARRATIVE: CASE EVENT DATE: 20170510
